FAERS Safety Report 6300567-2 (Version None)
Quarter: 2009Q3

REPORT INFORMATION
  Report Type: 
  Country: None (occurrence: None)
  Receive Date: 20090806
  Receipt Date: 20090430
  Transmission Date: 20100115
  Serious: No
  Sender: FDA-Public Use
  Company Number: US-ABBOTT-09P-163-0570910-00

PATIENT
  Sex: Female
  Weight: 70.37 kg

DRUGS (6)
  1. DEPAKOTE ER [Suspect]
     Indication: MYOCLONIC EPILEPSY
     Route: 048
     Dates: start: 20030101, end: 20070301
  2. DEPAKOTE ER [Suspect]
     Route: 048
     Dates: start: 20070301, end: 20071101
  3. DEPAKOTE ER [Suspect]
     Route: 048
     Dates: start: 20071101
  4. DEPAKOTE ER [Suspect]
     Route: 048
     Dates: start: 20080201, end: 20080301
  5. DEPAKOTE ER [Suspect]
     Route: 048
     Dates: start: 20080301
  6. DEPAKOTE ER [Suspect]
     Route: 048
     Dates: end: 20080201

REACTIONS (3)
  - COGNITIVE DISORDER [None]
  - CONVULSION [None]
  - WEIGHT INCREASED [None]
